FAERS Safety Report 17114951 (Version 1)
Quarter: 2019Q4

REPORT INFORMATION
  Report Type: Spontaneous
  Country: US (occurrence: US)
  Receive Date: 20191205
  Receipt Date: 20191205
  Transmission Date: 20200122
  Serious: No
  Sender: FDA-Public Use
  Company Number: US-GW PHARMA-201910USGW3745

PATIENT

DRUGS (15)
  1. EPIDIOLEX [Suspect]
     Active Substance: CANNABIDIOL
     Indication: EPILEPSY
     Dosage: 5 MG/KG/DAY
     Route: 048
     Dates: start: 20081218
  2. RAPAMYCIN [Interacting]
     Active Substance: SIROLIMUS
     Dosage: 4 MG
     Route: 065
  3. PHENYTOIN. [Concomitant]
     Active Substance: PHENYTOIN
     Indication: EPILEPSY
     Dosage: UNK
     Route: 065
  4. RAPAMYCIN [Interacting]
     Active Substance: SIROLIMUS
     Indication: PRODUCT USED FOR UNKNOWN INDICATION
     Dosage: 6 MG
     Route: 065
  5. LAMOTRIGINE. [Concomitant]
     Active Substance: LAMOTRIGINE
     Indication: EPILEPSY
     Dosage: UNK
     Route: 065
  6. RAPAMYCIN [Interacting]
     Active Substance: SIROLIMUS
     Dosage: 2 MG
     Route: 065
  7. KLONOPIN [Concomitant]
     Active Substance: CLONAZEPAM
     Indication: EPILEPSY
     Dosage: UNK
     Route: 065
  8. FYCOMPA [Concomitant]
     Active Substance: PERAMPANEL
     Indication: EPILEPSY
     Dosage: UNK
     Route: 065
  9. EPIDIOLEX [Interacting]
     Active Substance: CANNABIDIOL
     Dosage: 10 MG/KG/DAY
     Route: 048
     Dates: start: 20190319, end: 2019
  10. EPIDIOLEX [Interacting]
     Active Substance: CANNABIDIOL
     Dosage: 12 MG/KG/DAY
     Route: 048
     Dates: start: 20190605
  11. ONFI [Concomitant]
     Active Substance: CLOBAZAM
     Indication: EPILEPSY
     Dosage: UNK
     Route: 065
  12. EPIDIOLEX [Interacting]
     Active Substance: CANNABIDIOL
     Dosage: 10 MG/KG/DAY
     Route: 048
     Dates: start: 20190115, end: 2019
  13. ZONISAMIDE. [Concomitant]
     Active Substance: ZONISAMIDE
     Indication: EPILEPSY
     Dosage: UNK
     Route: 065
  14. LEVETIRACETAM. [Concomitant]
     Active Substance: LEVETIRACETAM
     Indication: EPILEPSY
     Dosage: UNK
     Route: 065
  15. RAPAMYCIN [Interacting]
     Active Substance: SIROLIMUS
     Dosage: 2 MG
     Route: 065

REACTIONS (1)
  - Drug interaction [Unknown]

NARRATIVE: CASE EVENT DATE: 20190115
